FAERS Safety Report 8313453-3 (Version None)
Quarter: 2012Q1

REPORT INFORMATION
  Report Type: 
  Country: None (occurrence: None)
  Receive Date: 20120315
  Receipt Date: 20110415
  Transmission Date: 20120608
  Serious: No
  Sender: FDA-Public Use
  Company Number: PHHY2011US21591

PATIENT
  Age: 49 Year
  Sex: Female

DRUGS (7)
  1. VITAMIN D [Concomitant]
  2. FIBER-LAX (POLYCARBOPHIL CALCIUM) [Concomitant]
  3. CALCIUM CARBONATE [Concomitant]
  4. PRILOSEC [Concomitant]
  5. SANCTURA [Concomitant]
  6. GILENYA [Suspect]
     Dosage: 0.5 MG, QD, ORAL
     Route: 048
     Dates: start: 20110324
  7. ASCORBIC ACID [Concomitant]

REACTIONS (4)
  - COUGH [None]
  - RHINORRHOEA [None]
  - DENTAL CARIES [None]
  - NASOPHARYNGITIS [None]
